FAERS Safety Report 24172917 (Version 1)
Quarter: 2024Q3

REPORT INFORMATION
  Report Type: Spontaneous
  Country: GB (occurrence: GB)
  Receive Date: 20240805
  Receipt Date: 20240805
  Transmission Date: 20241017
  Serious: Yes (Life-Threatening, Other)
  Sender: NOVARTIS
  Company Number: None

PATIENT
  Age: 75 Year
  Sex: Female

DRUGS (1)
  1. LUTATHERA [Suspect]
     Active Substance: LUTETIUM OXODOTREOTIDE LU-177
     Indication: Product used for unknown indication
     Dosage: UNK (7845 MBQ 01/06/2017, 7289 MBQ 07/09/2017, 7491 MBQ 12/12/2017, 7902 MBQ 01/03/2018)
     Route: 065
     Dates: start: 20170601, end: 20180301

REACTIONS (1)
  - Myelodysplastic syndrome [Not Recovered/Not Resolved]
